FAERS Safety Report 7125729-6 (Version None)
Quarter: 2010Q4

REPORT INFORMATION
  Report Type: 
  Country: None (occurrence: None)
  Receive Date: 20101129
  Receipt Date: 20101115
  Transmission Date: 20110411
  Serious: Yes (Other)
  Sender: FDA-Public Use
  Company Number: B0676316A

PATIENT
  Sex: Male
  Weight: 40 kg

DRUGS (3)
  1. SERETIDE DISKUS [Suspect]
     Indication: ASTHMA
     Dosage: 1PUFF TWICE PER DAY
     Route: 055
  2. VENTOLIN [Concomitant]
     Route: 055
  3. AERIUS [Concomitant]
     Route: 048

REACTIONS (6)
  - ASTHMATIC CRISIS [None]
  - BRONCHIAL OBSTRUCTION [None]
  - COUGH [None]
  - INCORRECT DOSE ADMINISTERED BY DEVICE [None]
  - PAINFUL RESPIRATION [None]
  - PRODUCT QUALITY ISSUE [None]
